FAERS Safety Report 5772758-0 (Version None)
Quarter: 2008Q2

REPORT INFORMATION
  Report Type: 
  Country: None (occurrence: None)
  Receive Date: 20080613
  Receipt Date: 20080606
  Transmission Date: 20081010
  Serious: Yes (Hospitalization)
  Sender: FDA-Public Use
  Company Number: JP-ABBOTT-08P-087-0456296-00

PATIENT
  Sex: Male

DRUGS (4)
  1. KALETRA [Suspect]
     Indication: HIV INFECTION
     Dosage: 800MG/200MG (TOTAL DAILY DOSE)
     Route: 048
  2. LAMIVUDINE [Concomitant]
     Indication: HIV INFECTION
     Route: 048
  3. ABACAVIR [Concomitant]
     Indication: HIV INFECTION
     Route: 048
  4. OCTOCOG ALFA [Concomitant]
     Indication: HAEMARTHROSIS
     Dosage: 500-1000 U / 3-4 TIMES A MONTH
     Route: 042

REACTIONS (1)
  - ASCITES [None]
